FAERS Safety Report 9335158 (Version 2)
Quarter: 2016Q3

REPORT INFORMATION
  Report Type: Spontaneous
  Country: US (occurrence: US)
  Receive Date: 20130606
  Receipt Date: 20160722
  Transmission Date: 20161109
  Serious: Yes (Hospitalization, Other)
  Sender: FDA-Public Use
  Company Number: US-009507513-1305USA017850

PATIENT
  Sex: Female

DRUGS (7)
  1. CHOLECALCIFEROL [Concomitant]
     Active Substance: CHOLECALCIFEROL
     Indication: ROUTINE HEALTH MAINTENANCE
     Dosage: 50000 IU, QW
     Route: 065
     Dates: start: 1990
  2. CENTRUM (MINERALS (UNSPECIFIED) (+) VITAMINS (UNSPECIFIED)) [Concomitant]
     Indication: ROUTINE HEALTH MAINTENANCE
     Dosage: UNK, UNKNOWN
     Route: 065
     Dates: start: 1990
  3. VITAMIN E [Concomitant]
     Active Substance: .ALPHA.-TOCOPHEROL
     Indication: ROUTINE HEALTH MAINTENANCE
     Dosage: 400 IU, UNKNOWN
     Dates: start: 1990
  4. OS-CAL + D [Concomitant]
     Indication: ROUTINE HEALTH MAINTENANCE
     Dosage: 500 MG, UNKNOWN
     Route: 065
     Dates: start: 1990
  5. FOSAMAX [Suspect]
     Active Substance: ALENDRONATE SODIUM
     Indication: OSTEOPOROSIS
     Dosage: 10 MG, QD
     Route: 048
     Dates: start: 1996, end: 2003
  6. ASCORBIC ACID. [Concomitant]
     Active Substance: ASCORBIC ACID
     Indication: ROUTINE HEALTH MAINTENANCE
     Dosage: 200 MG, UNKNOWN
     Dates: start: 1990
  7. CALCIUM (UNSPECIFIED) [Concomitant]
     Active Substance: CALCIUM
     Indication: ROUTINE HEALTH MAINTENANCE
     Dosage: 200 IU, UNKNOWN
     Route: 065
     Dates: start: 1990

REACTIONS (9)
  - Osteoporosis [Unknown]
  - Peripheral arthritis [Unknown]
  - Femur fracture [Unknown]
  - Hypertension [Unknown]
  - Blood cholesterol increased [Unknown]
  - Tooth extraction [Unknown]
  - Oral surgery [Unknown]
  - Vitamin D deficiency [Unknown]
  - Foot fracture [Unknown]

NARRATIVE: CASE EVENT DATE: 2000
